FAERS Safety Report 7908614-9 (Version None)
Quarter: 2011Q4

REPORT INFORMATION
  Report Type: 
  Country: None (occurrence: None)
  Receive Date: 20111111
  Receipt Date: 20111108
  Transmission Date: 20120403
  Serious: Yes (Hospitalization)
  Sender: FDA-Public Use
  Company Number: US-PFIZER INC-A008731

PATIENT
  Age: 74 Year
  Sex: Female

DRUGS (3)
  1. LOPID [Suspect]
     Dosage: BID
  2. AZITHROMYCIN [Suspect]
     Indication: RESPIRATORY TRACT INFECTION
     Dosage: DAILY
     Route: 048
  3. BAYCOL [Suspect]
     Indication: HYPERCHOLESTEROLAEMIA
     Dosage: DAILY
     Route: 048

REACTIONS (1)
  - RHABDOMYOLYSIS [None]
